FAERS Safety Report 11091694 (Version 1)
Quarter: 2015Q2

REPORT INFORMATION
  Report Type: Spontaneous
  Country: US (occurrence: US)
  Receive Date: 20150505
  Receipt Date: 20150505
  Transmission Date: 20150821
  Serious: No
  Sender: FDA-Public Use
  Company Number: US-GLAXOSMITHKLINE-US2015055646

PATIENT
  Age: 65 Year
  Sex: Female

DRUGS (25)
  1. FLEXERIL [Concomitant]
     Active Substance: CYCLOBENZAPRINE HYDROCHLORIDE
  2. FOLIC ACID. [Concomitant]
     Active Substance: FOLIC ACID
  3. LEFLUNOMIDE. [Concomitant]
     Active Substance: LEFLUNOMIDE
  4. OXYCODONE [Concomitant]
     Active Substance: OXYCODONE
  5. VITAMIN A [Concomitant]
     Active Substance: VITAMIN A
  6. VITAMIN C [Concomitant]
     Active Substance: ASCORBIC ACID
  7. MORPHINE [Concomitant]
     Active Substance: MORPHINE
  8. FOSAMAX [Concomitant]
     Active Substance: ALENDRONATE SODIUM
  9. ALBUTEROL. [Concomitant]
     Active Substance: ALBUTEROL
  10. TRAZODONE [Concomitant]
     Active Substance: TRAZODONE HYDROCHLORIDE
  11. SINGULAIR [Concomitant]
     Active Substance: MONTELUKAST SODIUM
  12. LEVOTHYROXINE [Concomitant]
     Active Substance: LEVOTHYROXINE
  13. BREO ELLIPTA [Suspect]
     Active Substance: FLUTICASONE FUROATE\VILANTEROL TRIFENATATE
     Indication: ASTHMA
  14. ASPIRIN. [Concomitant]
     Active Substance: ASPIRIN
  15. DOMPERIDONE [Concomitant]
     Active Substance: DOMPERIDONE
  16. COLACE [Concomitant]
     Active Substance: DOCUSATE SODIUM
  17. CALCIUM [Concomitant]
     Active Substance: CALCIUM
  18. FISH OIL [Concomitant]
     Active Substance: FISH OIL
  19. VITAMIN B COMPLEX [Concomitant]
     Active Substance: CYANOCOBALAMIN\DEXPANTHENOL\NIACINAMIDE\PYRIDOXINE HYDROCHLORIDE\RIBOFLAVIN 5^-PHOSPHATE SODIUM\THIAMINE HYDROCHLORIDE\VITAMIN B COMPLEX
  20. ZYRTEC [Concomitant]
     Active Substance: CETIRIZINE HYDROCHLORIDE
  21. CEVIMELINE [Concomitant]
     Active Substance: CEVIMELINE
  22. BREO ELLIPTA [Suspect]
     Active Substance: FLUTICASONE FUROATE\VILANTEROL TRIFENATATE
     Indication: CHRONIC OBSTRUCTIVE PULMONARY DISEASE
     Dosage: 1 PUFF(S), QD
     Route: 055
     Dates: start: 20150423
  23. AMBIEN [Concomitant]
     Active Substance: ZOLPIDEM TARTRATE
  24. XANAX [Concomitant]
     Active Substance: ALPRAZOLAM
  25. HUMIRA [Concomitant]
     Active Substance: ADALIMUMAB

REACTIONS (1)
  - Headache [Not Recovered/Not Resolved]

NARRATIVE: CASE EVENT DATE: 20150423
